FAERS Safety Report 15249048 (Version 1)
Quarter: 2018Q3

REPORT INFORMATION
  Report Type: Spontaneous
  Country: US (occurrence: US)
  Receive Date: 20180807
  Receipt Date: 20180807
  Transmission Date: 20181010
  Serious: No
  Sender: FDA-Public Use
  Company Number: US-MYLANLABS-2018M1052363

PATIENT

DRUGS (4)
  1. LISINOPRIL. [Suspect]
     Active Substance: LISINOPRIL
     Indication: HYPERTENSION
     Dosage: 10 MG, UNK
     Route: 049
  2. BABY ASPIRIN [Interacting]
     Active Substance: ASPIRIN
     Indication: PRODUCT USED FOR UNKNOWN INDICATION
  3. VALSARTAN. [Interacting]
     Active Substance: VALSARTAN
     Indication: PRODUCT USED FOR UNKNOWN INDICATION
     Dosage: 160 MG, UNK
  4. ALBUTEROL                          /00139501/ [Interacting]
     Active Substance: ALBUTEROL
     Indication: ASTHMA
     Dosage: 1 MG, UNK

REACTIONS (4)
  - Dizziness [Recovered/Resolved]
  - Drug interaction [Recovered/Resolved]
  - Tremor [Unknown]
  - Headache [Unknown]
